FAERS Safety Report 12690140 (Version 1)
Quarter: 2016Q3

REPORT INFORMATION
  Report Type: Spontaneous
  Country: TW (occurrence: TW)
  Receive Date: 20160826
  Receipt Date: 20160826
  Transmission Date: 20161109
  Serious: Yes (Other)
  Sender: FDA-Public Use
  Company Number: TW-FRESENIUS KABI-FK201605886

PATIENT
  Age: 28 Year
  Sex: Male

DRUGS (2)
  1. ETOPOSIDE (MANUFACTURER UNKNOWN) [Suspect]
     Active Substance: ETOPOSIDE
     Indication: HISTIOCYTOSIS HAEMATOPHAGIC
     Route: 065
  2. STEROIDS [Suspect]
     Active Substance: UNSPECIFIED INGREDIENT
     Indication: HISTIOCYTOSIS HAEMATOPHAGIC

REACTIONS (2)
  - Pneumocystis jirovecii pneumonia [Recovering/Resolving]
  - T-cell lymphoma [Recovering/Resolving]
